FAERS Safety Report 5333110-5 (Version None)
Quarter: 2007Q2

REPORT INFORMATION
  Report Type: 
  Country: None (occurrence: None)
  Receive Date: 20070521
  Receipt Date: 20070521
  Transmission Date: 20071010
  Serious: Yes (Hospitalization)
  Sender: FDA-Public Use
  Company Number: None

PATIENT
  Sex: Male
  Weight: 96.1626 kg

DRUGS (2)
  1. CRESTOR [Suspect]
     Indication: CORONARY ARTERY DISEASE
     Dosage: 40MG QHS PO
     Route: 048
     Dates: start: 20060913, end: 20070516
  2. CRESTOR [Suspect]
     Indication: HYPERTENSION
     Dosage: 40MG QHS PO
     Route: 048
     Dates: start: 20060913, end: 20070516

REACTIONS (3)
  - MUSCULOSKELETAL CHEST PAIN [None]
  - RENAL FAILURE ACUTE [None]
  - RHABDOMYOLYSIS [None]
